FAERS Safety Report 5157022-5 (Version None)
Quarter: 2006Q4

REPORT INFORMATION
  Report Type: 
  Country: None (occurrence: None)
  Receive Date: 20061127
  Receipt Date: 20061113
  Transmission Date: 20070319
  Serious: Yes (Disabling)
  Sender: FDA-Public Use
  Company Number: GB-JNJFOC-20061103070

PATIENT
  Age: 68 Year
  Sex: Female
  Weight: 55 kg

DRUGS (6)
  1. HALOPERIDOL [Suspect]
     Indication: ANXIETY
     Route: 048
  2. HALOPERIDOL [Suspect]
     Indication: AGITATION
     Route: 048
  3. LITHIUM CARBONATE [Concomitant]
     Indication: DEPRESSION
     Route: 048
  4. LOFEPRAMINE [Concomitant]
     Indication: DEPRESSION
     Route: 048
  5. MIRTAZAPINE [Concomitant]
     Indication: DEPRESSION
     Route: 048
  6. TRAZODONE HCL [Concomitant]
     Indication: DEPRESSION
     Route: 048

REACTIONS (2)
  - AKATHISIA [None]
  - DRUG WITHDRAWAL SYNDROME [None]
